FAERS Safety Report 12221943 (Version 2)
Quarter: 2016Q3

REPORT INFORMATION
  Report Type: Spontaneous
  Country: US (occurrence: US)
  Receive Date: 20160330
  Receipt Date: 20160830
  Transmission Date: 20161109
  Serious: Yes (Other)
  Sender: FDA-Public Use
  Company Number: US-BAYER-2016-054918

PATIENT
  Age: 70 Year
  Sex: Female
  Weight: 97.5 kg

DRUGS (4)
  1. AVELOX [Suspect]
     Active Substance: MOXIFLOXACIN HYDROCHLORIDE
     Indication: ACUTE SINUSITIS
     Dosage: UNK
     Dates: start: 20120405, end: 20120407
  2. AVELOX [Suspect]
     Active Substance: MOXIFLOXACIN HYDROCHLORIDE
     Indication: PNEUMONIA
     Dosage: UNK
     Dates: start: 201303, end: 201303
  3. LEVAQUIN [Suspect]
     Active Substance: LEVOFLOXACIN
     Indication: ACUTE SINUSITIS
     Dosage: 500 MG, UNK
     Dates: start: 20110719, end: 20120409
  4. LEVAQUIN [Suspect]
     Active Substance: LEVOFLOXACIN
     Indication: BRONCHITIS
     Dosage: UNK
     Dates: start: 201211, end: 201212

REACTIONS (1)
  - Neuropathy peripheral [None]
